FAERS Safety Report 8050796-5 (Version None)
Quarter: 2012Q1

REPORT INFORMATION
  Report Type: 
  Country: None (occurrence: None)
  Receive Date: 20120117
  Receipt Date: 20120110
  Transmission Date: 20120608
  Serious: Yes (Other)
  Sender: FDA-Public Use
  Company Number: US-MILLENNIUM PHARMACEUTICALS, INC.-2012-00225

PATIENT
  Sex: Male

DRUGS (7)
  1. VELCADE [Suspect]
     Indication: MULTIPLE MYELOMA
  2. FENTANYL [Concomitant]
     Indication: PAIN
     Dosage: 75 MG, UNK
     Route: 062
  3. GABAPENTIN [Concomitant]
     Indication: NEUROPATHY PERIPHERAL
  4. RITALIN [Concomitant]
     Indication: AFFECTIVE DISORDER
     Dosage: 10 MG, UNK
     Dates: start: 20111001, end: 20111031
  5. DECADRON [Concomitant]
     Indication: MULTIPLE MYELOMA
     Dosage: 40 MG, CYCLIC
  6. LENALIDOMIDE [Suspect]
     Indication: MULTIPLE MYELOMA
     Dosage: 25 MG, CYCLIC
     Route: 048
     Dates: start: 20111001
  7. EFFEXOR [Concomitant]
     Indication: AFFECTIVE DISORDER
     Dosage: 150 MG, UNK
     Dates: start: 20111001, end: 20111107

REACTIONS (2)
  - VENOUS THROMBOSIS LIMB [None]
  - NEUROPATHY PERIPHERAL [None]
